FAERS Safety Report 24306622 (Version 2)
Quarter: 2024Q3

REPORT INFORMATION
  Report Type: Report from Study
  Country: US (occurrence: US)
  Receive Date: 20240911
  Receipt Date: 20240915
  Transmission Date: 20241016
  Serious: No
  Sender: ALEXION PHARMACEUTICALS
  Company Number: US-AstraZeneca-CH-00701572A

PATIENT
  Sex: Female

DRUGS (1)
  1. STRENSIQ [Suspect]
     Active Substance: ASFOTASE ALFA
     Indication: Product used for unknown indication
     Dosage: UNK
     Route: 065

REACTIONS (10)
  - Fatigue [Unknown]
  - Alopecia [Unknown]
  - Dehydration [Unknown]
  - Thirst [Unknown]
  - Asthenia [Unknown]
  - Dizziness [Unknown]
  - Pollakiuria [Unknown]
  - Nephropathy [Unknown]
  - Nausea [Unknown]
  - Polydipsia [Unknown]
